FAERS Safety Report 4883158-X (Version None)
Quarter: 2006Q1

REPORT INFORMATION
  Report Type: 
  Country: None (occurrence: None)
  Receive Date: 20060117
  Receipt Date: 20060117
  Transmission Date: 20060701
  Serious: Yes (Death)
  Sender: FDA-Public Use
  Company Number: None

PATIENT
  Age: 6 Month
  Sex: Female

DRUGS (5)
  1. CARBAXEFED RF [Suspect]
  2. AMOXICILLIN [Suspect]
  3. INFANT'S TYLENOL COLD [Suspect]
  4. TYLENOL (CAPLET) [Concomitant]
  5. MOTRIN [Concomitant]

REACTIONS (4)
  - LISTLESS [None]
  - OVERDOSE [None]
  - PNEUMONIA [None]
  - SCREAMING [None]
